FAERS Safety Report 9750217 (Version 1)
Quarter: 2013Q4

REPORT INFORMATION
  Report Type: Spontaneous
  Country: JP (occurrence: JP)
  Receive Date: 20131212
  Receipt Date: 20131212
  Transmission Date: 20140711
  Serious: Yes (Other)
  Sender: FDA-Public Use
  Company Number: JP-GLAXOSMITHKLINE-B0941411A

PATIENT
  Age: 74 Year
  Sex: Female

DRUGS (10)
  1. VALTREX [Suspect]
     Indication: HERPES ZOSTER
     Dosage: 500MG TWICE PER DAY
     Route: 048
     Dates: start: 20131030, end: 20131101
  2. CALBLOCK [Concomitant]
     Indication: HYPERTENSION
     Dosage: 16MG PER DAY
     Route: 048
  3. REGPARA [Concomitant]
     Indication: HYPERPARATHYROIDISM
     Dosage: 50MG PER DAY
     Route: 048
  4. OMEPRAZOLE [Concomitant]
     Dosage: 10MG PER DAY
     Route: 048
  5. CILOSTAZOL [Concomitant]
     Indication: LACUNAR INFARCTION
     Dosage: 100MG TWICE PER DAY
     Route: 048
  6. RENAGEL [Concomitant]
     Indication: HYPERPARATHYROIDISM
     Dosage: 1000MG THREE TIMES PER DAY
     Route: 048
  7. ALLOPURINOL [Concomitant]
     Indication: HYPERURICAEMIA
     Dosage: 100MG PER DAY
     Route: 048
  8. FLUVASTATIN [Concomitant]
     Indication: HYPERLIPIDAEMIA
     Dosage: 20MG PER DAY
     Route: 048
  9. DOXAZOSIN MESILATE [Concomitant]
     Indication: HYPERTENSION
     Dosage: 2MG PER DAY
     Route: 048
  10. CASANTHRANOL [Concomitant]
     Indication: CONSTIPATION
     Dosage: 1IUAX THREE TIMES PER DAY
     Route: 048

REACTIONS (6)
  - Dyslalia [Recovered/Resolved]
  - Dizziness [Recovered/Resolved]
  - Nausea [Recovered/Resolved]
  - Vomiting [Recovered/Resolved]
  - Decreased appetite [Recovering/Resolving]
  - Psychiatric symptom [Recovering/Resolving]
